FAERS Safety Report 25044276 (Version 1)
Quarter: 2025Q1

REPORT INFORMATION
  Report Type: Report from Study
  Country: CA (occurrence: CA)
  Receive Date: 20250306
  Receipt Date: 20250306
  Transmission Date: 20250408
  Serious: Yes (Other)
  Sender: TAKEDA
  Company Number: CA-TAKEDA-2025TUS022410

PATIENT
  Age: 44 Year
  Sex: Male

DRUGS (14)
  1. VEDOLIZUMAB [Suspect]
     Active Substance: VEDOLIZUMAB
     Indication: Colitis ulcerative
  2. VEDOLIZUMAB [Suspect]
     Active Substance: VEDOLIZUMAB
     Dosage: 300 MILLIGRAM, Q4WEEKS
     Dates: start: 20250127
  3. PERINDOPRIL [Concomitant]
     Active Substance: PERINDOPRIL
  4. PROGRAF [Concomitant]
     Active Substance: TACROLIMUS
  5. PROGRAF [Concomitant]
     Active Substance: TACROLIMUS
     Dosage: 5 MILLIGRAM, BID
     Dates: start: 20221104
  6. VITAMIN D [Concomitant]
     Active Substance: VITAMIN D NOS
  7. CALCIUM CARBONATE [Concomitant]
     Active Substance: CALCIUM CARBONATE
  8. ASPIRIN [Concomitant]
     Active Substance: ASPIRIN
  9. ASPIRIN [Concomitant]
     Active Substance: ASPIRIN
  10. RABEPRAZOLE SODIUM [Concomitant]
     Active Substance: RABEPRAZOLE SODIUM
  11. RABEPRAZOLE SODIUM [Concomitant]
     Active Substance: RABEPRAZOLE SODIUM
  12. FELODIPINE [Concomitant]
     Active Substance: FELODIPINE
  13. URSODIOL [Concomitant]
     Active Substance: URSODIOL
     Dosage: 1000 MILLIGRAM, QD
     Dates: start: 20221104
  14. MAGNESIUM OXIDE [Concomitant]
     Active Substance: MAGNESIUM OXIDE

REACTIONS (2)
  - Nephrolithiasis [Recovering/Resolving]
  - Off label use [Unknown]

NARRATIVE: CASE EVENT DATE: 20250127
